FAERS Safety Report 5869094-0 (Version None)
Quarter: 2008Q3

REPORT INFORMATION
  Report Type: 
  Country: None (occurrence: None)
  Receive Date: 20080903
  Receipt Date: 20080829
  Transmission Date: 20090109
  Serious: Yes (Hospitalization)
  Sender: FDA-Public Use
  Company Number: US-BRISTOL-MYERS SQUIBB COMPANY-14319180

PATIENT
  Age: 83 Year
  Sex: Female
  Weight: 44 kg

DRUGS (1)
  1. DASATINIB [Suspect]
     Indication: SMALL CELL LUNG CANCER STAGE UNSPECIFIED
     Dosage: LAST DOSE ADMINISTERED: 13JUL08
     Route: 048
     Dates: start: 20080711

REACTIONS (3)
  - ANOREXIA [None]
  - DEHYDRATION [None]
  - FATIGUE [None]
